FAERS Safety Report 16878273 (Version 1)
Quarter: 2019Q4

REPORT INFORMATION
  Report Type: Spontaneous
  Country: JP (occurrence: JP)
  Receive Date: 20191002
  Receipt Date: 20191002
  Transmission Date: 20200122
  Serious: Yes (Other)
  Sender: FDA-Public Use
  Company Number: PHJP2019JP012758

PATIENT

DRUGS (1)
  1. PAZOPANIB [Suspect]
     Active Substance: PAZOPANIB
     Indication: RENAL CELL CARCINOMA
     Dosage: UNK
     Route: 048

REACTIONS (8)
  - Disseminated intravascular coagulation [Unknown]
  - Haematoma [Unknown]
  - Cardiac dysfunction [Unknown]
  - Infection [Unknown]
  - Dermatitis [Unknown]
  - Myocarditis [Unknown]
  - Pyrexia [Unknown]
  - Renal disorder [Unknown]
